FAERS Safety Report 11129402 (Version 6)
Quarter: 2015Q3

REPORT INFORMATION
  Report Type: Spontaneous
  Country: CH (occurrence: ES)
  Receive Date: 20150521
  Receipt Date: 20150824
  Transmission Date: 20151125
  Serious: Yes (Other)
  Sender: FDA-Public Use
  Company Number: CH-LPDUSPRD-20150353

PATIENT
  Age: 37 Year
  Sex: Female

DRUGS (1)
  1. FERINJECT [Suspect]
     Active Substance: FERRIC CARBOXYMALTOSE
     Dosage: 1000 MG
     Route: 041
     Dates: start: 20150428, end: 20150428

REACTIONS (2)
  - Influenza like illness [Unknown]
  - Product quality issue [Unknown]

NARRATIVE: CASE EVENT DATE: 20150429
